FAERS Safety Report 5622905-6 (Version None)
Quarter: 2008Q1

REPORT INFORMATION
  Report Type: 
  Country: None (occurrence: None)
  Receive Date: 20080212
  Receipt Date: 20080204
  Transmission Date: 20080703
  Serious: Yes (Hospitalization, Other)
  Sender: FDA-Public Use
  Company Number: GB-JNJFOC-20080200645

PATIENT
  Sex: Female
  Weight: 93 kg

DRUGS (5)
  1. REMICADE [Suspect]
     Indication: RHEUMATOID ARTHRITIS
     Route: 042
  2. METHOTREXATE [Concomitant]
  3. ACECLOFENAC [Concomitant]
  4. FOLIC ACID [Concomitant]
  5. VENLAFAXINE HCL [Concomitant]

REACTIONS (1)
  - MUSCLE SPASMS [None]
